FAERS Safety Report 6411535-4 (Version None)
Quarter: 2009Q4

REPORT INFORMATION
  Report Type: 
  Country: None (occurrence: None)
  Receive Date: 20091023
  Receipt Date: 20091015
  Transmission Date: 20100525
  Serious: Yes (Hospitalization)
  Sender: FDA-Public Use
  Company Number: US-JNJFOC-20091005797

PATIENT
  Sex: Female
  Weight: 77.11 kg

DRUGS (3)
  1. DURAGESIC-100 [Suspect]
     Indication: PAIN
     Route: 062
  2. UNKNOWN MEDICATION [Concomitant]
     Indication: MUSCLE SPASMS
  3. STOMACH AGENT [Concomitant]

REACTIONS (4)
  - ASTHENIA [None]
  - GALLBLADDER OPERATION [None]
  - MALAISE [None]
  - VOMITING [None]
